FAERS Safety Report 5392766-1 (Version None)
Quarter: 2007Q3

REPORT INFORMATION
  Report Type: 
  Country: None (occurrence: None)
  Receive Date: 20070720
  Receipt Date: 20070709
  Transmission Date: 20080115
  Serious: Yes (Other)
  Sender: FDA-Public Use
  Company Number: US-PFIZER INC-2007046175

PATIENT
  Sex: Female
  Weight: 92.5 kg

DRUGS (1)
  1. BEXTRA [Suspect]
     Dosage: DAILY DOSE:20MG

REACTIONS (1)
  - STEVENS-JOHNSON SYNDROME [None]
